FAERS Safety Report 6405921-6 (Version None)
Quarter: 2009Q4

REPORT INFORMATION
  Report Type: 
  Country: None (occurrence: None)
  Receive Date: 20091019
  Receipt Date: 20091007
  Transmission Date: 20100525
  Serious: No
  Sender: FDA-Public Use
  Company Number: US-B.I. PHARMACEUTICALS,INC./RIDGEFIELD-2009-BP-11726BP

PATIENT
  Age: 80 Year
  Sex: Female

DRUGS (4)
  1. MICARDIS HCT [Suspect]
     Indication: HYPERTENSION
     Route: 048
     Dates: start: 19970101
  2. INSULIN [Concomitant]
     Indication: DIABETES MELLITUS
  3. THYROID PILL [Concomitant]
  4. POTASSIUM CHLORIDE [Concomitant]

REACTIONS (4)
  - ALOPECIA [None]
  - MUSCLE SPASMS [None]
  - ONYCHOCLASIS [None]
  - SKIN TIGHTNESS [None]
